FAERS Safety Report 11702871 (Version 2)
Quarter: 2015Q4

REPORT INFORMATION
  Report Type: Report from Study
  Country: US (occurrence: US)
  Receive Date: 20151105
  Receipt Date: 20151125
  Transmission Date: 20160304
  Serious: Yes (Death, Hospitalization)
  Sender: FDA-Public Use
  Company Number: US-JNJFOC-20151004042

PATIENT
  Sex: Male

DRUGS (9)
  1. ALLOPURINOL. [Concomitant]
     Active Substance: ALLOPURINOL
  2. PREDNISONE. [Concomitant]
     Active Substance: PREDNISONE
  3. IMBRUVICA [Suspect]
     Active Substance: IBRUTINIB
     Indication: CHRONIC LYMPHOCYTIC LEUKAEMIA
     Route: 048
     Dates: start: 20150729, end: 201509
  4. BIO-CURCUMIN [Concomitant]
  5. FLUOXETINE [Concomitant]
     Active Substance: FLUOXETINE HYDROCHLORIDE
  6. ZYRTEC [Concomitant]
     Active Substance: CETIRIZINE HYDROCHLORIDE
  7. PANTOPRAZOLE [Concomitant]
     Active Substance: PANTOPRAZOLE SODIUM
  8. BETHANECHOL [Concomitant]
     Active Substance: BETHANECHOL
  9. MONTELUKAST [Concomitant]
     Active Substance: MONTELUKAST SODIUM

REACTIONS (7)
  - Lung infiltration [Not Recovered/Not Resolved]
  - Disease progression [Fatal]
  - Stomatitis [Unknown]
  - Hypogammaglobulinaemia [Not Recovered/Not Resolved]
  - Drug intolerance [Unknown]
  - Acute respiratory failure [Not Recovered/Not Resolved]
  - Pneumonia pseudomonal [Unknown]

NARRATIVE: CASE EVENT DATE: 2015
